FAERS Safety Report 8969223 (Version 1)
Quarter: 2012Q4

REPORT INFORMATION
  Report Type: 
  Country: US (occurrence: US)
  Receive Date: 20121218
  Receipt Date: 20121218
  Transmission Date: 20130627
  Serious: No
  Sender: FDA-Public Use
  Company Number: US-BRISTOL-MYERS SQUIBB COMPANY-16317786

PATIENT
  Age: 16 Year
  Sex: Male
  Weight: 63.49 kg

DRUGS (3)
  1. ABILIFY TABS 5 MG [Suspect]
     Indication: PSYCHOTIC DISORDER
     Dosage: Also taken 2mg
7 or 8 days 1/2 tab for 2 days split the tab half in mng  and half at night
     Route: 048
     Dates: start: 201112
  2. ABILIFY TABS 5 MG [Suspect]
     Indication: AFFECTIVE DISORDER
     Dosage: Also taken 2mg
7 or 8 days 1/2 tab for 2 days split the tab half in mng  and half at night
     Route: 048
     Dates: start: 201112
  3. ABILIFY TABS 5 MG [Suspect]
     Indication: PARANOIA
     Dosage: Also taken 2mg
7 or 8 days 1/2 tab for 2 days split the tab half in mng  and half at night
     Route: 048
     Dates: start: 201112

REACTIONS (6)
  - Dyspnoea [Recovered/Resolved]
  - Feeling abnormal [Unknown]
  - Feeling jittery [Unknown]
  - Restlessness [Unknown]
  - Wrong technique in drug usage process [Unknown]
  - Akathisia [Recovered/Resolved]
